FAERS Safety Report 7241635-0 (Version None)
Quarter: 2011Q1

REPORT INFORMATION
  Report Type: 
  Country: None (occurrence: None)
  Receive Date: 20110124
  Receipt Date: 20110117
  Transmission Date: 20110831
  Serious: Yes (Other)
  Sender: FDA-Public Use
  Company Number: US-JNJFOC-20110104673

PATIENT
  Age: 73 Year
  Sex: Male
  Weight: 106.6 kg

DRUGS (2)
  1. EXTRA STRENGTH TYLENOL [Suspect]
     Route: 048
  2. EXTRA STRENGTH TYLENOL [Suspect]
     Indication: INFLUENZA
     Route: 048

REACTIONS (5)
  - DYSPNOEA [None]
  - TREMOR [None]
  - HYPOKINESIA [None]
  - CHILLS [None]
  - MUSCULOSKELETAL STIFFNESS [None]
